FAERS Safety Report 9022262 (Version 1)
Quarter: 2013Q1

REPORT INFORMATION
  Report Type: Spontaneous
  Country: US (occurrence: US)
  Receive Date: 20130118
  Receipt Date: 20130118
  Transmission Date: 20140127
  Serious: Yes (Other)
  Sender: FDA-Public Use
  Company Number: PHEH2013US001503

PATIENT
  Sex: Male

DRUGS (2)
  1. DIOVAN [Suspect]
     Indication: CARDIAC DISORDER
     Dosage: 160 MG, BID
     Route: 048
  2. CARVEDILOL [Concomitant]

REACTIONS (1)
  - Cardiac failure congestive [Unknown]
